FAERS Safety Report 20565127 (Version 2)
Quarter: 2022Q1

REPORT INFORMATION
  Report Type: Spontaneous
  Country: JP (occurrence: None)
  Receive Date: 20220308
  Receipt Date: 20220322
  Transmission Date: 20220423
  Serious: Yes (Other)
  Sender: FDA-Public Use
  Company Number: JP-Orion Corporation ORION PHARMA-ENT 2022-0028

PATIENT
  Age: 61 Year
  Sex: Female

DRUGS (4)
  1. COMTAN [Suspect]
     Active Substance: ENTACAPONE
     Indication: Parkinson^s disease
     Dosage: 6QD
     Route: 048
  2. COMTAN [Suspect]
     Active Substance: ENTACAPONE
     Route: 048
  3. STALEVO [Suspect]
     Active Substance: CARBIDOPA\ENTACAPONE\LEVODOPA
     Indication: Parkinson^s disease
     Dosage: STRENGTH: (UNK/UNK/100) MG
     Route: 048
  4. CARBIDOPA\LEVODOPA [Concomitant]
     Active Substance: CARBIDOPA\LEVODOPA
     Route: 065

REACTIONS (3)
  - Therapeutic product effect delayed [Unknown]
  - Parkinson^s disease [Unknown]
  - Product dose omission in error [Unknown]
